FAERS Safety Report 25320201 (Version 2)
Quarter: 2025Q4

REPORT INFORMATION
  Report Type: Spontaneous
  Country: GB (occurrence: US)
  Receive Date: 20250515
  Receipt Date: 20251113
  Transmission Date: 20260118
  Serious: No
  Sender: JOHNSON AND JOHNSON
  Company Number: GB-JNJFOC-20250517054

PATIENT
  Age: 66 Year

DRUGS (1)
  1. CARVYKTI [Suspect]
     Active Substance: CILTACABTAGENE AUTOLEUCEL
     Indication: Plasma cell myeloma
     Route: 065
     Dates: start: 20240814

REACTIONS (4)
  - Appetite disorder [Recovered/Resolved]
  - Ageusia [Recovered/Resolved]
  - Muscle atrophy [Recovered/Resolved]
  - Nail atrophy [Recovered/Resolved]

NARRATIVE: CASE EVENT DATE: 20240801
